FAERS Safety Report 10265792 (Version 3)
Quarter: 2014Q3

REPORT INFORMATION
  Report Type: Spontaneous
  Country: US (occurrence: US)
  Receive Date: 20140627
  Receipt Date: 20140813
  Transmission Date: 20150326
  Serious: Yes (Other)
  Sender: FDA-Public Use
  Company Number: US-GLAXOSMITHKLINE-A1078062A

PATIENT
  Age: 72 Year
  Sex: Male

DRUGS (11)
  1. ADVAIR HFA [Suspect]
     Active Substance: FLUTICASONE PROPIONATE\SALMETEROL XINAFOATE
     Indication: CHRONIC OBSTRUCTIVE PULMONARY DISEASE
     Dosage: 1PUFF AS REQUIRED
     Route: 055
     Dates: start: 2011
  2. FINASTERIDE. [Concomitant]
     Active Substance: FINASTERIDE
  3. LANTUS [Concomitant]
     Active Substance: INSULIN GLARGINE
  4. ASPIRIN. [Concomitant]
     Active Substance: ASPIRIN
  5. GLYBURIDE. [Concomitant]
     Active Substance: GLYBURIDE
  6. VITAMIN B12 [Concomitant]
     Active Substance: CYANOCOBALAMIN
  7. PLAVIX [Concomitant]
     Active Substance: CLOPIDOGREL BISULFATE
  8. METFORMIN [Concomitant]
     Active Substance: METFORMIN HYDROCHLORIDE
  9. SINEMET [Concomitant]
     Active Substance: CARBIDOPA\LEVODOPA
  10. LOPRESSOR [Concomitant]
     Active Substance: METOPROLOL TARTRATE
  11. LIPITOR [Concomitant]
     Active Substance: ATORVASTATIN CALCIUM

REACTIONS (1)
  - Parkinson^s disease [Not Recovered/Not Resolved]

NARRATIVE: CASE EVENT DATE: 201301
